FAERS Safety Report 5268659-7 (Version None)
Quarter: 2007Q1

REPORT INFORMATION
  Report Type: 
  Country: None (occurrence: None)
  Receive Date: 20070319
  Receipt Date: 20070316
  Transmission Date: 20070707
  Serious: Yes (Hospitalization)
  Sender: FDA-Public Use
  Company Number: US-BRISTOL-MYERS SQUIBB COMPANY-13716691

PATIENT
  Age: 65 Year
  Sex: Female
  Weight: 102 kg

DRUGS (14)
  1. AVAPRO [Suspect]
     Indication: HYPERTENSION
     Dosage: DOSE WAS INCREASED TO 300 MG/DAY PRIOR TO DISCONTINUATION.
     Dates: start: 20020101
  2. VICODIN [Concomitant]
  3. ROBAXIN [Concomitant]
  4. LEXAPRO [Concomitant]
  5. RISPERDAL [Concomitant]
  6. TROSPIUM CHLORIDE [Concomitant]
  7. METFORMIN [Concomitant]
  8. VITARINE [Concomitant]
  9. PROTONIX [Concomitant]
  10. PREVACID [Concomitant]
  11. ASPIRIN [Concomitant]
  12. TOPAMAX [Concomitant]
  13. TYLENOL [Concomitant]
  14. SINEMET [Concomitant]

REACTIONS (4)
  - APHONIA [None]
  - COUGH [None]
  - PHARYNGEAL OEDEMA [None]
  - SWOLLEN TONGUE [None]
